FAERS Safety Report 11880188 (Version 1)
Quarter: 2015Q4

REPORT INFORMATION
  Report Type: Spontaneous
  Country: US (occurrence: US)
  Receive Date: 20151230
  Receipt Date: 20151230
  Transmission Date: 20160305
  Serious: Yes (Hospitalization)
  Sender: FDA-Public Use
  Company Number: US-UNITED THERAPEUTICS-UNT-2015-015182

PATIENT
  Age: 77 Year
  Sex: Female
  Weight: 77.98 kg

DRUGS (1)
  1. REMODULIN [Suspect]
     Active Substance: TREPROSTINIL
     Indication: PULMONARY HYPERTENSION
     Dosage: 0.089 ?G/KG/MIN, CONTINUING
     Route: 041
     Dates: start: 20070521

REACTIONS (7)
  - Asthenia [Unknown]
  - Dizziness [Unknown]
  - Injection site haemorrhage [Unknown]
  - Fatigue [Unknown]
  - Device leakage [Unknown]
  - Malaise [Unknown]
  - Headache [Unknown]

NARRATIVE: CASE EVENT DATE: 201511
